FAERS Safety Report 19130385 (Version 1)
Quarter: 2021Q2

REPORT INFORMATION
  Report Type: Spontaneous
  Country: GB (occurrence: GB)
  Receive Date: 20210414
  Receipt Date: 20210414
  Transmission Date: 20210717
  Serious: Yes (Hospitalization, Other)
  Sender: FDA-Public Use
  Company Number: GB-AUROBINDO-AUR-APL-2020-059515

PATIENT
  Age: 41 Year
  Sex: Female

DRUGS (1)
  1. DULOXETINE. [Suspect]
     Active Substance: DULOXETINE
     Indication: DEPRESSION
     Dosage: 30 MILLIGRAM, ONCE A DAY
     Route: 065

REACTIONS (15)
  - Mania [Recovered/Resolved]
  - Flight of ideas [Recovered/Resolved]
  - Irritability [Recovered/Resolved]
  - Disturbance in sexual arousal [Recovered/Resolved]
  - Aggression [Recovered/Resolved]
  - Persecutory delusion [Recovered/Resolved]
  - Abnormal behaviour [Recovered/Resolved]
  - Insomnia [Recovered/Resolved]
  - Psychotic symptom [Recovered/Resolved]
  - Psychomotor hyperactivity [Recovered/Resolved]
  - Hallucination, visual [Recovered/Resolved]
  - Hallucination, auditory [Recovered/Resolved]
  - Grandiosity [Recovered/Resolved]
  - Pressure of speech [Recovered/Resolved]
  - Anosognosia [Recovered/Resolved]
